FAERS Safety Report 4468211-7 (Version None)
Quarter: 2004Q4

REPORT INFORMATION
  Report Type: 
  Country: None (occurrence: None)
  Receive Date: 20041007
  Receipt Date: 20040826
  Transmission Date: 20050328
  Serious: No
  Sender: FDA-Public Use
  Company Number: JP-MERCK-0409USA00834

PATIENT
  Age: 41 Year
  Sex: Male

DRUGS (4)
  1. PULMICORT [Concomitant]
     Indication: ASTHMA
     Route: 055
     Dates: start: 20040703
  2. DIFLUCAN [Concomitant]
     Indication: ORAL CANDIDIASIS
     Route: 048
     Dates: start: 20040705, end: 20040711
  3. SINGULAIR [Suspect]
     Indication: ASTHMA
     Route: 048
     Dates: start: 20040626, end: 20040826
  4. SEREVENT [Concomitant]
     Indication: ASTHMA
     Route: 055
     Dates: start: 20031214

REACTIONS (1)
  - PLATELET COUNT DECREASED [None]
